FAERS Safety Report 20517886 (Version 3)
Quarter: 2022Q1

REPORT INFORMATION
  Report Type: Report from Study
  Country: CA (occurrence: CA)
  Receive Date: 20220225
  Receipt Date: 20220323
  Transmission Date: 20220423
  Serious: Yes (Other)
  Sender: FDA-Public Use
  Company Number: CA-JNJFOC-20220236396

PATIENT
  Age: 56 Year
  Sex: Male
  Weight: 81 kg

DRUGS (1)
  1. REMICADE [Suspect]
     Active Substance: INFLIXIMAB
     Indication: Crohn^s disease
     Dosage: THERAPY START DATE WAS ALSO GIVEN AS 30-AUG-2011
     Route: 042
     Dates: start: 20110722

REACTIONS (4)
  - Pulmonary congestion [Not Recovered/Not Resolved]
  - SARS-CoV-2 test positive [Unknown]
  - Productive cough [Recovering/Resolving]
  - Foreign body in respiratory tract [Unknown]

NARRATIVE: CASE EVENT DATE: 20220214
